FAERS Safety Report 20247246 (Version 1)
Quarter: 2021Q4

REPORT INFORMATION
  Report Type: Spontaneous
  Country: US (occurrence: None)
  Receive Date: 20211229
  Receipt Date: 20211229
  Transmission Date: 20220303
  Serious: Yes (Other)
  Sender: FDA-Public Use
  Company Number: US-Hikma Pharmaceuticals USA Inc.-US-H14001-21-05608

PATIENT
  Age: 38 Year
  Sex: Male

DRUGS (13)
  1. FENTANYL [Suspect]
     Active Substance: FENTANYL
     Indication: Product used for unknown indication
     Dosage: UNKNOWN
     Route: 065
  2. METHAMPHETAMINE [Suspect]
     Active Substance: METHAMPHETAMINE
     Indication: Product used for unknown indication
     Dosage: UNKNOWN
     Route: 065
  3. HALOPERIDOL [Suspect]
     Active Substance: HALOPERIDOL
     Indication: Agitation
     Dosage: UNKNOWN
     Route: 065
  4. HALOPERIDOL [Suspect]
     Active Substance: HALOPERIDOL
     Dosage: UNKNOWN
     Route: 065
  5. RISPERIDONE [Suspect]
     Active Substance: RISPERIDONE
     Indication: Agitation
     Dosage: UNKNOWN
     Route: 065
  6. COCAINE [Concomitant]
     Active Substance: COCAINE
     Indication: Product used for unknown indication
     Dosage: UNKNOWN
     Route: 065
  7. CANNABIS SATIVA FLOWERING TOP [Concomitant]
     Active Substance: CANNABIS SATIVA FLOWERING TOP
     Indication: Product used for unknown indication
     Dosage: UNKNOWN
     Route: 065
  8. BENZODIAZEPINE [Concomitant]
     Active Substance: BENZODIAZEPINE
     Indication: Product used for unknown indication
     Dosage: UNKNOWN
     Route: 065
  9. DIVALPROEX SODIUM [Concomitant]
     Active Substance: DIVALPROEX SODIUM
     Indication: Agitation
     Dosage: UNKNOWN
     Route: 065
  10. ARIPIPRAZOLE [Concomitant]
     Active Substance: ARIPIPRAZOLE
     Indication: Agitation
     Dosage: UNKNOWN
     Route: 065
  11. OLANZAPINE [Concomitant]
     Active Substance: OLANZAPINE
     Indication: Agitation
     Dosage: UNKNOWN
     Route: 065
  12. PROPRANOLOL [Concomitant]
     Active Substance: PROPRANOLOL HYDROCHLORIDE
     Indication: Aggression
     Dosage: UNKNOWN
     Route: 065
  13. PROPRANOLOL [Concomitant]
     Active Substance: PROPRANOLOL HYDROCHLORIDE
     Indication: Impulsive behaviour

REACTIONS (20)
  - Drug abuse [Unknown]
  - Cognitive disorder [Recovering/Resolving]
  - Disorientation [Recovered/Resolved]
  - Executive dysfunction [Unknown]
  - Abnormal behaviour [Unknown]
  - Dementia [Unknown]
  - Neurotoxicity [Unknown]
  - Impulsive behaviour [Unknown]
  - Muscle rigidity [Recovering/Resolving]
  - Hyperreflexia [Unknown]
  - Tachycardia [Unknown]
  - Tachypnoea [Unknown]
  - Hypertension [Unknown]
  - Paroxysmal sympathetic hyperactivity [Unknown]
  - Hyperhidrosis [Recovering/Resolving]
  - Posturing [Recovering/Resolving]
  - Aggression [Unknown]
  - Sexually inappropriate behaviour [Unknown]
  - Tremor [Unknown]
  - Agitation [Recovering/Resolving]
